FAERS Safety Report 5627317-7 (Version None)
Quarter: 2008Q1

REPORT INFORMATION
  Report Type: 
  Country: None (occurrence: None)
  Receive Date: 20080215
  Receipt Date: 20080207
  Transmission Date: 20080703
  Serious: Yes (Hospitalization, Other)
  Sender: FDA-Public Use
  Company Number: JP-JNJFOC-20080103843

PATIENT
  Sex: Female

DRUGS (9)
  1. FINIBAX [Suspect]
     Indication: C-REACTIVE PROTEIN INCREASED
     Route: 041
  2. FINIBAX [Suspect]
     Indication: PYREXIA
     Route: 041
  3. MAXIPIME [Suspect]
     Indication: INFECTION
     Route: 041
  4. MAXIPIME [Suspect]
     Indication: C-REACTIVE PROTEIN INCREASED
     Route: 041
  5. MAXIPIME [Suspect]
     Indication: PYREXIA
     Route: 041
  6. FLUOROURACIL [Suspect]
     Route: 041
  7. FLUOROURACIL [Suspect]
     Indication: OROPHARYNGEAL CANCER STAGE UNSPECIFIED
     Route: 041
  8. BRIPLATIN [Suspect]
     Route: 041
  9. BRIPLATIN [Suspect]
     Indication: OROPHARYNGEAL CANCER STAGE UNSPECIFIED
     Route: 041

REACTIONS (1)
  - PANCYTOPENIA [None]
